FAERS Safety Report 17354302 (Version 1)
Quarter: 2020Q1

REPORT INFORMATION
  Report Type: Spontaneous
  Country: IR (occurrence: IR)
  Receive Date: 20200131
  Receipt Date: 20200131
  Transmission Date: 20200409
  Serious: Yes (Death, Other)
  Sender: FDA-Public Use
  Company Number: IR-QUAGEN PHARMA LLC-2020QUALIT00013

PATIENT
  Sex: Male

DRUGS (3)
  1. SODIUM VALPROATE [Suspect]
     Active Substance: VALPROATE SODIUM
  2. PROMETHAZINE HYDROCHLORIDE TABLETS, 12.5 MG [Suspect]
     Active Substance: PROMETHAZINE HYDROCHLORIDE
  3. LITHIUM. [Suspect]
     Active Substance: LITHIUM

REACTIONS (3)
  - Neuroleptic malignant syndrome [Fatal]
  - Aphasia [Recovered/Resolved]
  - Muscle rigidity [Recovered/Resolved]
